FAERS Safety Report 5132945-1 (Version None)
Quarter: 2006Q4

REPORT INFORMATION
  Report Type: 
  Country: None (occurrence: None)
  Receive Date: 20061019
  Receipt Date: 20061019
  Transmission Date: 20070319
  Serious: No
  Sender: FDA-Public Use
  Company Number: None

PATIENT
  Age: 85 Year
  Sex: Male
  Weight: 81.6475 kg

DRUGS (1)
  1. FLOMAX [Suspect]
     Indication: URINE FLOW DECREASED
     Dosage: 0.4 MG P.O. DAILY
     Route: 048

REACTIONS (4)
  - CATARACT OPERATION COMPLICATION [None]
  - IRIS DISORDER [None]
  - PROCEDURAL COMPLICATION [None]
  - PUPILLARY REFLEX IMPAIRED [None]
